FAERS Safety Report 25771061 (Version 1)
Quarter: 2025Q3

REPORT INFORMATION
  Report Type: Spontaneous
  Country: CN (occurrence: CN)
  Receive Date: 20250908
  Receipt Date: 20250908
  Transmission Date: 20251021
  Serious: Yes (Hospitalization, Other)
  Sender: NOVITIUM PHARMA
  Company Number: CN-NOVITIUMPHARMA-2025CNNVP02245

PATIENT
  Age: 54 Year
  Sex: Male

DRUGS (5)
  1. PREDNISONE [Suspect]
     Active Substance: PREDNISONE
     Indication: Immunosuppression
     Route: 048
  2. TACROLIMUS [Concomitant]
     Active Substance: TACROLIMUS
  3. TACROLIMUS [Concomitant]
     Active Substance: TACROLIMUS
  4. MYCOPHENOLATE MOFETIL [Concomitant]
     Active Substance: MYCOPHENOLATE MOFETIL
  5. Adefovir-dipivoxil [Concomitant]
     Indication: Hepatitis B

REACTIONS (4)
  - Peritonitis [Recovering/Resolving]
  - Fungal infection [Unknown]
  - Gastrointestinal haemorrhage [Unknown]
  - Gastrointestinal perforation [Recovering/Resolving]
